FAERS Safety Report 5708322-9 (Version None)
Quarter: 2008Q2

REPORT INFORMATION
  Report Type: 
  Country: None (occurrence: None)
  Receive Date: 20080414
  Receipt Date: 20021015
  Transmission Date: 20081010
  Serious: Yes (Hospitalization)
  Sender: FDA-Public Use
  Company Number: 2002IC000291

PATIENT
  Age: 15 Year
  Sex: Female

DRUGS (1)
  1. DALMANE [Suspect]
     Dosage: PO
     Route: 048

REACTIONS (4)
  - AMNESIA [None]
  - DISORIENTATION [None]
  - DYSARTHRIA [None]
  - GAIT DISTURBANCE [None]
